FAERS Safety Report 11297195 (Version 2)
Quarter: 2015Q4

REPORT INFORMATION
  Report Type: Spontaneous
  Country: US (occurrence: US)
  Receive Date: 20150722
  Receipt Date: 20151104
  Transmission Date: 20160304
  Serious: No
  Sender: FDA-Public Use
  Company Number: US-ELI_LILLY_AND_COMPANY-US201102005512

PATIENT
  Age: 84 Year
  Sex: Female

DRUGS (11)
  1. FORTEO [Suspect]
     Active Substance: TERIPARATIDE
     Indication: OSTEOPOROSIS
     Dosage: 20 UG, DAILY (1/D)
     Dates: start: 20091015
  2. NORVASC [Concomitant]
     Active Substance: AMLODIPINE BESYLATE
  3. MULTI-VIT [Concomitant]
     Active Substance: VITAMINS
  4. CITRACAL-D [Concomitant]
  5. VITAMIN C [Concomitant]
     Active Substance: ASCORBIC ACID
  6. TOPROL XL [Concomitant]
     Active Substance: METOPROLOL SUCCINATE
     Indication: BLOOD PRESSURE MEASUREMENT
  7. HYDROCHLOROTHIAZIDE. [Concomitant]
     Active Substance: HYDROCHLOROTHIAZIDE
  8. VITAMIN D [Concomitant]
     Active Substance: CHOLECALCIFEROL
     Dosage: 2000 MG, DAILY (1/D)
  9. FORTEO [Suspect]
     Active Substance: TERIPARATIDE
     Dosage: 20 UG, DAILY (1/D)
     Dates: start: 20110126, end: 20110222
  10. EVISTA [Suspect]
     Active Substance: RALOXIFENE HYDROCHLORIDE
     Indication: OSTEOPOROSIS
     Dates: start: 200309, end: 200609
  11. PRAVACHOL [Concomitant]
     Active Substance: PRAVASTATIN SODIUM
     Indication: BLOOD CHOLESTEROL

REACTIONS (8)
  - Lower limb fracture [Unknown]
  - Discomfort [Unknown]
  - Ankle fracture [Unknown]
  - Wrist fracture [Unknown]
  - Upper limb fracture [Unknown]
  - Bone density decreased [Unknown]
  - Fall [Recovered/Resolved]
  - Drug ineffective [Unknown]

NARRATIVE: CASE EVENT DATE: 201101
